FAERS Safety Report 8485483-2 (Version None)
Quarter: 2012Q2

REPORT INFORMATION
  Report Type: 
  Country: None (occurrence: None)
  Receive Date: 20120627
  Receipt Date: 20120627
  Transmission Date: 20120825
  Serious: Yes (Other)
  Sender: FDA-Public Use
  Company Number: None

PATIENT
  Sex: Female

DRUGS (9)
  1. CLONIDINE [Concomitant]
  2. DIOGAN [Concomitant]
  3. METFORMIN HCL [Concomitant]
  4. TRICOR [Concomitant]
  5. ASPIRIN [Concomitant]
  6. METOPROLOL TARTRATE [Concomitant]
  7. VYTORIN [Concomitant]
  8. HYDROCHLOROTHIAZIDE [Concomitant]
  9. PRADAXA [Suspect]
     Indication: ATRIAL FIBRILLATION
     Dosage: 150 MG TWICE A DAY PO
     Route: 048
     Dates: start: 20120518, end: 20120608

REACTIONS (1)
  - HAEMATOCHEZIA [None]
